FAERS Safety Report 5419620-0 (Version None)
Quarter: 2007Q3

REPORT INFORMATION
  Report Type: 
  Country: None (occurrence: None)
  Receive Date: 20070816
  Receipt Date: 20070816
  Transmission Date: 20080115
  Serious: Yes (Other)
  Sender: FDA-Public Use
  Company Number: None

PATIENT
  Age: 2 Year
  Sex: Female
  Weight: 10.4327 kg

DRUGS (2)
  1. ZYRTEC [Suspect]
     Indication: MULTIPLE ALLERGIES
     Dosage: 1 ML/CC   ONCE A DAY  PO
     Route: 048
     Dates: start: 20061001, end: 20070321
  2. ZYRTEC [Suspect]
     Indication: RHINORRHOEA
     Dosage: 1 ML/CC   ONCE A DAY  PO
     Route: 048
     Dates: start: 20061001, end: 20070321

REACTIONS (1)
  - ALOPECIA [None]
